FAERS Safety Report 23042282 (Version 2)
Quarter: 2023Q4

REPORT INFORMATION
  Report Type: Report from Study
  Country: US (occurrence: US)
  Receive Date: 20231008
  Receipt Date: 20231009
  Transmission Date: 20240109
  Serious: No
  Sender: FDA-Public Use
  Company Number: US-002147023-NVSC2023US216540

PATIENT
  Age: 79 Year
  Sex: Female

DRUGS (1)
  1. MEKINIST [Suspect]
     Active Substance: TRAMETINIB DIMETHYL SULFOXIDE
     Indication: Lung neoplasm
     Dosage: 2 MG, QD
     Route: 048
     Dates: start: 20231002, end: 20231004

REACTIONS (4)
  - Memory impairment [Unknown]
  - Product dose omission issue [Unknown]
  - Product storage error [Unknown]
  - Product use in unapproved indication [Unknown]
